FAERS Safety Report 8829467 (Version 1)
Quarter: 2012Q4

REPORT INFORMATION
  Report Type: 
  Country: US (occurrence: US)
  Receive Date: 20121008
  Receipt Date: 20121008
  Transmission Date: 20130627
  Serious: Yes (Hospitalization, Other)
  Sender: FDA-Public Use
  Company Number: US-ROCHE-1131306

PATIENT
  Sex: Male

DRUGS (14)
  1. RITUXAN [Suspect]
     Indication: NON-HODGKIN^S LYMPHOMA
     Route: 065
     Dates: start: 20011107
  2. CYCLOPHOSPHAMIDE [Concomitant]
  3. PREDNISOLONE [Concomitant]
  4. VINCRISTINE [Concomitant]
  5. HALOPERIDOL [Concomitant]
  6. LEVAQUIN [Concomitant]
  7. BENADRYL [Concomitant]
  8. TYLENOL [Concomitant]
  9. PROPOFOL [Concomitant]
  10. XANAX [Concomitant]
  11. ZITHROMAX [Concomitant]
  12. CAPOTEN [Concomitant]
     Dosage: 1/2 tablet
     Route: 065
  13. COREG [Concomitant]
     Route: 065
  14. K-DUR [Concomitant]
     Route: 065

REACTIONS (13)
  - Pain in extremity [Recovered/Resolved]
  - Pyrexia [Recovered/Resolved]
  - Dyspnoea [Unknown]
  - Pleural effusion [Unknown]
  - Haemoptysis [Unknown]
  - Pulmonary oedema [Unknown]
  - Cough [Unknown]
  - Confusional state [Unknown]
  - Pain in extremity [Recovered/Resolved]
  - Myocardial infarction [Unknown]
  - Haemorrhage [Unknown]
  - Tachycardia [Unknown]
  - Hypotension [Unknown]
